FAERS Safety Report 7009494 (Version 3)
Quarter: 2012Q4

REPORT INFORMATION
  Report Type: Report from Study
  Country: JP (occurrence: JP)
  Receive Date: 20090603
  Receipt Date: 20121004
  Transmission Date: 20130627
  Serious: Yes (Hospitalization)
  Sender: FDA-Public Use
  Company Number: PHHY2009JP19947

PATIENT
  Age: 59 Year
  Sex: Female
  Weight: 65 kg

DRUGS (20)
  1. ICL670A [Suspect]
     Indication: IRON OVERLOAD
     Dosage: 1250 mg, per day
     Route: 048
     Dates: start: 20081008, end: 20081016
  2. ICL670A [Suspect]
     Dosage: 1250 mg, per day
     Route: 048
     Dates: start: 20081028, end: 20081029
  3. NEORAL [Concomitant]
     Indication: MYELODYSPLASTIC SYNDROME
     Dosage: UNK
     Route: 048
     Dates: start: 20080208, end: 20080626
  4. GLAKAY [Concomitant]
     Dosage: 15 mg, UNK
     Route: 048
  5. CINAL [Concomitant]
     Dosage: 1 g, UNK
     Route: 048
  6. FAROM [Concomitant]
     Dosage: 400 mg, UNK
     Route: 048
  7. PRIMOBOLAN [Concomitant]
     Dosage: 6 mg, UNK
     Route: 048
  8. TAKEPRON [Concomitant]
     Dosage: 45 mg, UNK
     Route: 048
  9. ISCOTIN [Concomitant]
     Dosage: 300 mg, UNK
     Route: 048
  10. MICARDIS [Concomitant]
     Dosage: 80 mg, UNK
     Route: 048
  11. MECOBALAMIN [Concomitant]
     Dosage: 1000 mg, UNK
     Route: 048
  12. ALLOPURINOL [Concomitant]
     Dosage: 200 mg, UNK
     Route: 048
  13. ITRIZOLE [Concomitant]
     Dosage: 3 ml, UNK
     Route: 048
  14. GARENOXACIN [Concomitant]
     Dosage: 800 mg, UNK
     Route: 048
  15. CARBAZOCHROME SODIUM SULFONATE [Concomitant]
     Dosage: 400 mg, UNK
     Route: 042
  16. DAIPHEN [Concomitant]
     Dosage: 3 g, UNK
     Route: 048
  17. SOLU-CORTEF [Concomitant]
     Dosage: 400 mg, UNK
     Route: 042
  18. BROACT [Concomitant]
     Dosage: 4 g, UNK
     Route: 042
  19. MEROPEN [Concomitant]
     Dosage: 2 g, UNK
     Route: 041
  20. FUNGUARD [Concomitant]
     Dosage: 200 mg, UNK
     Route: 041

REACTIONS (7)
  - Hypotension [Recovered/Resolved]
  - Pyrexia [Recovered/Resolved]
  - Rash [Recovered/Resolved]
  - Rash generalised [Recovered/Resolved]
  - Renal impairment [Recovered/Resolved]
  - Blood creatinine increased [Recovered/Resolved]
  - Blood urea increased [Recovered/Resolved]
